FAERS Safety Report 9904440 (Version 2)
Quarter: 2014Q1

REPORT INFORMATION
  Report Type: Spontaneous
  Country: US (occurrence: US)
  Receive Date: 20140218
  Receipt Date: 20140313
  Transmission Date: 20141002
  Serious: No
  Sender: FDA-Public Use
  Company Number: US-JNJFOC-20140201961

PATIENT
  Sex: Female
  Weight: 81.65 kg

DRUGS (6)
  1. DURAGESIC [Suspect]
     Indication: BACK PAIN
     Route: 062
  2. FENTANYL TRANSDERMAL SYSTEM [Suspect]
     Indication: BACK PAIN
     Route: 062
  3. NORCO [Concomitant]
     Indication: PAIN
     Dosage: 10-325MG AS NEEDED
     Route: 048
  4. EFFEXOR  XR [Concomitant]
     Indication: ANTIDEPRESSANT THERAPY
     Dosage: 10-325MG AS NEEDED
     Route: 048
  5. TOVIAZ [Concomitant]
     Indication: BLADDER DISORDER
     Dosage: 10-325MG AS NEEDED
     Route: 048
  6. SYNTHROID [Concomitant]
     Indication: THYROID DISORDER
     Dosage: 10-325MG AS NEEDED
     Route: 048

REACTIONS (4)
  - Application site pruritus [Not Recovered/Not Resolved]
  - Wrong technique in drug usage process [Unknown]
  - Product physical consistency issue [Unknown]
  - Adverse event [Unknown]
